FAERS Safety Report 22222596 (Version 2)
Quarter: 2023Q2

REPORT INFORMATION
  Report Type: Spontaneous
  Country: US (occurrence: US)
  Receive Date: 20230418
  Receipt Date: 20230616
  Transmission Date: 20230721
  Serious: Yes (Life-Threatening, Hospitalization, Other)
  Sender: FDA-Public Use
  Company Number: US-GLAXOSMITHKLINE-US2023AMR055976

PATIENT

DRUGS (1)
  1. BENLYSTA [Suspect]
     Active Substance: BELIMUMAB
     Indication: Systemic lupus erythematosus
     Dosage: UNK
     Route: 058

REACTIONS (20)
  - Hospitalisation [Unknown]
  - Breast cancer [Unknown]
  - Colon cancer [Unknown]
  - Alopecia [Unknown]
  - Pruritus [Unknown]
  - Visual impairment [Unknown]
  - Pharyngeal swelling [Unknown]
  - Secretion discharge [Unknown]
  - Contusion [Unknown]
  - Insomnia [Unknown]
  - Headache [Unknown]
  - Fluid retention [Unknown]
  - Tremor [Unknown]
  - Pyrexia [Unknown]
  - Hyperhidrosis [Unknown]
  - Blood pressure increased [Unknown]
  - Heart rate decreased [Unknown]
  - Speech disorder [Unknown]
  - Periorbital swelling [Unknown]
  - Product complaint [Unknown]
